FAERS Safety Report 9929804 (Version 2)
Quarter: 2014Q1

REPORT INFORMATION
  Report Type: Spontaneous
  Country: US (occurrence: US)
  Receive Date: 20140227
  Receipt Date: 20140319
  Transmission Date: 20141002
  Serious: No
  Sender: FDA-Public Use
  Company Number: US-009507513-1402USA011945

PATIENT
  Age: 65 Year
  Sex: Female
  Weight: 72.56 kg

DRUGS (2)
  1. OXYTROL FOR WOMEN [Suspect]
     Indication: NOCTURIA
     Dosage: 1 DF, UNKNOWN
     Route: 062
     Dates: start: 201402, end: 201402
  2. OXYTROL FOR WOMEN [Suspect]
     Indication: HYPERTONIC BLADDER

REACTIONS (5)
  - Anxiety [Unknown]
  - Application site irritation [Unknown]
  - Application site pruritus [Unknown]
  - Application site erythema [Unknown]
  - Drug ineffective [Unknown]
